FAERS Safety Report 8927513 (Version 3)
Quarter: 2012Q4

REPORT INFORMATION
  Report Type: 
  Country: JP (occurrence: JP)
  Receive Date: 20121127
  Receipt Date: 20121219
  Transmission Date: 20130627
  Serious: Yes (Death, Hospitalization)
  Sender: FDA-Public Use
  Company Number: JP-WATSON-2012-19755

PATIENT
  Age: 74 Year
  Sex: Male

DRUGS (8)
  1. RAPAFLO (WATSON LABORATORIES) [Suspect]
     Indication: BENIGN PROSTATIC HYPERPLASIA
     Dosage: 4 mg BID
     Route: 048
     Dates: start: 20121002, end: 20121015
  2. THYRADIN S [Concomitant]
     Indication: HYPOTHYROIDISM
     Dosage: 50 mcg daily
     Route: 048
     Dates: start: 20120608
  3. LAC-B [Concomitant]
     Indication: DIARRHOEA
     Dosage: 3 G daily
     Route: 048
     Dates: start: 20120702
  4. ZOVIRAX                            /00587301/ [Concomitant]
     Indication: HERPES VIRUS INFECTION
     Dosage: 200 mg daily
     Route: 048
  5. DIOVAN [Concomitant]
     Indication: HYPERTENSION
     Dosage: 80 mg daily
     Route: 048
  6. OMEPRAZOLE [Concomitant]
     Indication: GASTRIC ULCER
     Dosage: 10 mg daily
     Route: 048
  7. SHAKUYAKUKANZOTO [Concomitant]
     Indication: MUSCLE SPASMS
     Dosage: 4 G daily
     Route: 048
  8. HYALEIN [Concomitant]
     Indication: CATARACT
     Dosage: Unk
     Route: 047

REACTIONS (1)
  - Interstitial lung disease [Fatal]
